FAERS Safety Report 22798581 (Version 2)
Quarter: 2024Q1

REPORT INFORMATION
  Report Type: Spontaneous
  Country: FR (occurrence: FR)
  Receive Date: 20230808
  Receipt Date: 20240219
  Transmission Date: 20240410
  Serious: Yes (Other)
  Sender: FDA-Public Use
  Company Number: None

PATIENT
  Age: 56 Year
  Sex: Female
  Weight: 65 kg

DRUGS (13)
  1. AVASTIN [Suspect]
     Active Substance: BEVACIZUMAB
     Indication: Cervix carcinoma
     Route: 065
     Dates: start: 20230628, end: 20230628
  2. CIMETIDINE [Suspect]
     Active Substance: CIMETIDINE
     Indication: Chemotherapy side effect prophylaxis
     Route: 065
     Dates: start: 20230628, end: 20230628
  3. APREPITANT [Suspect]
     Active Substance: APREPITANT
     Indication: Chemotherapy side effect prophylaxis
     Route: 066
     Dates: start: 20230628, end: 20230628
  4. ONDANSETRON [Suspect]
     Active Substance: ONDANSETRON
     Indication: Chemotherapy side effect prophylaxis
     Route: 065
     Dates: start: 20230628, end: 20230628
  5. VOGALENE [Suspect]
     Active Substance: METOPIMAZINE
     Indication: Vomiting
     Route: 065
     Dates: start: 20230628, end: 20230701
  6. DEXCHLORPHENIRAMINE [Suspect]
     Active Substance: DEXCHLORPHENIRAMINE
     Indication: Chemotherapy side effect prophylaxis
     Route: 065
     Dates: start: 20230628, end: 20230628
  7. PACLITAXEL [Suspect]
     Active Substance: PACLITAXEL
     Indication: Cervix carcinoma
     Route: 065
     Dates: start: 20230628, end: 20230628
  8. KEYTRUDA [Suspect]
     Active Substance: PEMBROLIZUMAB
     Indication: Cervix carcinoma
     Route: 065
     Dates: start: 20230628, end: 20230628
  9. CARBOPLATIN [Suspect]
     Active Substance: CARBOPLATIN
     Indication: Cervix carcinoma
     Route: 065
     Dates: start: 20230628, end: 20230628
  10. HERBALS\HOMEOPATHICS\PASSIFLORA INCARNATA FLOWER [Concomitant]
     Active Substance: HERBALS\HOMEOPATHICS\PASSIFLORA INCARNATA FLOWER
  11. LEVOTHYROXINE SODIUM [Concomitant]
     Active Substance: LEVOTHYROXINE SODIUM
  12. NEBIVOLOL [Concomitant]
     Active Substance: NEBIVOLOL
  13. ALPRAZOLAM [Concomitant]
     Active Substance: ALPRAZOLAM

REACTIONS (3)
  - Neutropenia [Recovered/Resolved]
  - Erythema [Recovering/Resolving]
  - Rash macular [Recovering/Resolving]

NARRATIVE: CASE EVENT DATE: 20230702
